FAERS Safety Report 25028821 (Version 1)
Quarter: 2025Q1

REPORT INFORMATION
  Report Type: Spontaneous
  Country: US (occurrence: US)
  Receive Date: 20250302
  Receipt Date: 20250302
  Transmission Date: 20250408
  Serious: Yes (Death, Hospitalization)
  Sender: AMGEN
  Company Number: US-AMGEN-USASP2025038482

PATIENT

DRUGS (1)
  1. PREDNISONE [Suspect]
     Active Substance: PREDNISONE
     Indication: Chronic obstructive pulmonary disease
     Dosage: 40 MILLIGRAM, QD
     Route: 065

REACTIONS (5)
  - Death [Fatal]
  - Hypokalaemia [Unknown]
  - Hyperglycaemia [Unknown]
  - Hypertension [Unknown]
  - Hypernatraemia [Unknown]
